FAERS Safety Report 5074152-7 (Version None)
Quarter: 2006Q3

REPORT INFORMATION
  Report Type: 
  Country: None (occurrence: None)
  Receive Date: 20060808
  Receipt Date: 20060727
  Transmission Date: 20061208
  Serious: Yes (Hospitalization)
  Sender: FDA-Public Use
  Company Number: US-ABBOTT-06P-163-0339106-00

PATIENT
  Sex: Male

DRUGS (2)
  1. GENGRAF [Suspect]
     Indication: RENAL TRANSPLANT
     Route: 048
     Dates: start: 20050101, end: 20060701
  2. GENGRAF [Suspect]
     Indication: PANCREAS TRANSPLANT

REACTIONS (3)
  - DEHYDRATION [None]
  - VIRAL INFECTION [None]
  - VOMITING [None]
